FAERS Safety Report 8776358 (Version 2)
Quarter: 2012Q4

REPORT INFORMATION
  Report Type: 
  Country: FR (occurrence: FR)
  Receive Date: 20120910
  Receipt Date: 20120920
  Transmission Date: 20130627
  Serious: Yes (Other)
  Sender: FDA-Public Use
  Company Number: FR-NAPPMUNDI-GBR-2012-0011358

PATIENT
  Age: 50 Year
  Sex: Male

DRUGS (13)
  1. MOSCONTIN [Suspect]
     Indication: PAIN
     Dosage: 500 mg, bid
     Route: 048
  2. MOSCONTIN, COMPRIME ENROBE A LIBERATION PROLONGEE [Concomitant]
     Indication: PAIN
     Dosage: 300 mg, bid
     Route: 048
  3. REYATAZ [Concomitant]
     Dosage: 300 mg, UNK
     Route: 048
  4. NORVIR [Concomitant]
     Dosage: 100 mg, UNK
     Route: 048
  5. TRUVADA [Concomitant]
     Dosage: 200 mg, UNK
  6. TRUVADA [Concomitant]
     Dosage: 245 mg, UNK
     Route: 048
  7. GARDENAL                           /00023201/ [Concomitant]
     Route: 048
  8. ZOLOFT [Concomitant]
     Dosage: 50 mg, UNK
     Route: 048
  9. MOGADON [Concomitant]
     Dosage: 5 mg, UNK
     Route: 048
  10. BACTRIM [Concomitant]
     Route: 048
  11. VOLTARENE                          /00372302/ [Concomitant]
     Dosage: 100 mg, UNK
     Route: 048
  12. ZOPICLONE [Concomitant]
     Route: 048
  13. UVEDOSE [Concomitant]
     Dosage: 100000 U/L, UNK
     Route: 048

REACTIONS (3)
  - Drug abuse [Recovering/Resolving]
  - Allodynia [Recovering/Resolving]
  - Hyperaesthesia [Recovering/Resolving]
